FAERS Safety Report 4872215-X (Version None)
Quarter: 2005Q4

REPORT INFORMATION
  Report Type: 
  Country: None (occurrence: None)
  Receive Date: 20051201
  Receipt Date: 20050729
  Transmission Date: 20060501
  Serious: No
  Sender: FDA-Public Use
  Company Number: 2005PV000752

PATIENT
  Age: 69 Year
  Sex: Female
  Weight: 110.6777 kg

DRUGS (14)
  1. BYETTA [Suspect]
     Indication: DIABETES MELLITUS NON-INSULIN-DEPENDENT
     Dosage: 5 MCG; BID; SC; 10 MCG; BID; SC
     Route: 058
     Dates: start: 20050629, end: 20050101
  2. COUMADIN [Concomitant]
  3. CLARINEX [Concomitant]
  4. ALLOPURINOL [Concomitant]
  5. LASIX [Concomitant]
  6. DETROL [Concomitant]
  7. TRAMADOL HCL [Concomitant]
  8. MAGNESIUM GLUCONATE [Concomitant]
  9. PROTONIX [Concomitant]
  10. ATENOLOL [Concomitant]
  11. GLIPIZIDE [Concomitant]
  12. FLUVASTATIN SODIUM [Concomitant]
  13. POTASSIUM CHLORIDE [Concomitant]
  14. COUMADIN [Concomitant]

REACTIONS (2)
  - INTERNATIONAL NORMALISED RATIO DECREASED [None]
  - INTERNATIONAL NORMALISED RATIO INCREASED [None]
